FAERS Safety Report 22595503 (Version 1)
Quarter: 2023Q2

REPORT INFORMATION
  Report Type: Report from Study
  Country: CO (occurrence: CO)
  Receive Date: 20230613
  Receipt Date: 20230613
  Transmission Date: 20230722
  Serious: Yes (Death, Other)
  Sender: FDA-Public Use
  Company Number: CO-AstraZeneca-2023A135259

PATIENT
  Age: 176 Day
  Sex: Male
  Weight: 5.6 kg

DRUGS (1)
  1. SYNAGIS [Suspect]
     Active Substance: PALIVIZUMAB
     Indication: Respiratory disorder
     Dosage: 15MG, MONTHLY
     Route: 030
     Dates: start: 20230210, end: 20230510

REACTIONS (1)
  - Death [Fatal]

NARRATIVE: CASE EVENT DATE: 20230604
